FAERS Safety Report 21694978 (Version 3)
Quarter: 2023Q4

REPORT INFORMATION
  Report Type: Report from Study
  Country: US (occurrence: US)
  Receive Date: 20221207
  Receipt Date: 20231024
  Transmission Date: 20240110
  Serious: No
  Sender: FDA-Public Use
  Company Number: US-IDORSIA-002337-2022-US

PATIENT
  Age: 56 Year
  Sex: Female

DRUGS (3)
  1. QUVIVIQ [Suspect]
     Active Substance: DARIDOREXANT
     Indication: Insomnia
     Dosage: 50 MG, QD
     Route: 048
     Dates: start: 202211, end: 202211
  2. LYRICA [Concomitant]
     Active Substance: PREGABALIN
     Indication: Pain
  3. ZANAFLEX [Concomitant]
     Active Substance: TIZANIDINE HYDROCHLORIDE

REACTIONS (5)
  - Dizziness [Recovered/Resolved]
  - Headache [Recovered/Resolved]
  - Hangover [Recovered/Resolved]
  - Nightmare [Recovered/Resolved]
  - Hypersomnia [Recovered/Resolved]

NARRATIVE: CASE EVENT DATE: 20221101
